FAERS Safety Report 4889575-6 (Version None)
Quarter: 2006Q1

REPORT INFORMATION
  Report Type: 
  Country: None (occurrence: None)
  Receive Date: 20060124
  Receipt Date: 20060117
  Transmission Date: 20060701
  Serious: Yes (Death)
  Sender: FDA-Public Use
  Company Number: JP-JNJFOC-20050906203

PATIENT

DRUGS (2)
  1. DUROTEP [Suspect]
  2. DUROTEP [Suspect]
     Indication: DRUG USE FOR UNKNOWN INDICATION

REACTIONS (3)
  - NAUSEA [None]
  - NEOPLASM MALIGNANT [None]
  - VOMITING [None]
